FAERS Safety Report 8500581 (Version 2)
Quarter: 2012Q4

REPORT INFORMATION
  Report Type: 
  Country: DE (occurrence: JP)
  Receive Date: 20120409
  Receipt Date: 20120828
  Transmission Date: 20130627
  Serious: Yes (Hospitalization)
  Sender: FDA-Public Use
  Company Number: JP-FRI-1000029605

PATIENT
  Age: 80 Year
  Sex: Female

DRUGS (2)
  1. MEMANTINE [Suspect]
     Indication: DEMENTIA ALZHEIMER^S TYPE
     Dosage: 5 mg
     Route: 048
     Dates: start: 20120117, end: 20120320
  2. TIAPRIDE HYDROCHLORIDE [Concomitant]

REACTIONS (5)
  - Vomiting [Recovering/Resolving]
  - Hepatic function abnormal [Recovering/Resolving]
  - Oxygen saturation decreased [Recovering/Resolving]
  - Fatigue [None]
  - Dysphagia [None]
